APPROVED DRUG PRODUCT: ELLA
Active Ingredient: ULIPRISTAL ACETATE
Strength: 30MG
Dosage Form/Route: TABLET;ORAL
Application: N022474 | Product #001 | TE Code: AB
Applicant: LABORATOIRE HRA PHARMA
Approved: Aug 13, 2010 | RLD: Yes | RS: Yes | Type: RX

PATENTS:
Patent 8426392 | Expires: Jun 12, 2030
Patent 8962603 | Expires: Jun 12, 2030
Patent 9283233 | Expires: Apr 13, 2030
Patent 10159681 | Expires: Apr 13, 2030
Patent 10772897 | Expires: Apr 13, 2030
Patent 8735380 | Expires: Feb 20, 2029
Patent 9844510 | Expires: Dec 8, 2028
Patent 8512745 | Expires: Jun 2, 2030